FAERS Safety Report 23838100 (Version 1)
Quarter: 2024Q2

REPORT INFORMATION
  Report Type: Spontaneous
  Country: IT (occurrence: IT)
  Receive Date: 20240509
  Receipt Date: 20240509
  Transmission Date: 20240716
  Serious: Yes (Death, Hospitalization, Other)
  Sender: FDA-Public Use
  Company Number: IT-ANIPHARMA-2024-IT-000049

PATIENT
  Age: 65 Year
  Sex: Female

DRUGS (1)
  1. LITHIUM [Suspect]
     Active Substance: LITHIUM
     Indication: Bipolar disorder
     Dosage: 1200 MG DAILY
     Route: 048

REACTIONS (2)
  - Posterior reversible encephalopathy syndrome [Unknown]
  - Hypernatraemia [Fatal]
